FAERS Safety Report 8587090-X (Version None)
Quarter: 2012Q3

REPORT INFORMATION
  Report Type: 
  Country: None (occurrence: None)
  Receive Date: 20120810
  Receipt Date: 20120730
  Transmission Date: 20120928
  Serious: Yes (Hospitalization)
  Sender: FDA-Public Use
  Company Number: US-ROCHE-1078546

PATIENT
  Sex: Female
  Weight: 48.124 kg

DRUGS (2)
  1. COPEGUS [Suspect]
     Indication: HEPATITIS C
     Route: 048
     Dates: start: 20110715, end: 20120420
  2. PEGASYS [Suspect]
     Indication: HEPATITIS C
     Route: 058
     Dates: start: 20110715, end: 20120420

REACTIONS (10)
  - APHASIA [None]
  - DISTURBANCE IN ATTENTION [None]
  - DEPRESSION [None]
  - TREMOR [None]
  - NAUSEA [None]
  - SUICIDAL IDEATION [None]
  - VOMITING [None]
  - AMNESIA [None]
  - FEELING ABNORMAL [None]
  - WEIGHT DECREASED [None]
